FAERS Safety Report 8987989 (Version 1)
Quarter: 2012Q4

REPORT INFORMATION
  Report Type: Report from Study
  Country: US (occurrence: US)
  Receive Date: 20121227
  Receipt Date: 20121227
  Transmission Date: 20130627
  Serious: Yes (Hospitalization)
  Sender: FDA-Public Use
  Company Number: US-ROCHE-1173376

PATIENT
  Age: 20 Year
  Sex: Male
  Weight: 76.9 kg

DRUGS (2)
  1. BEVACIZUMAB [Suspect]
     Indication: GLIOMA
     Route: 042
     Dates: start: 20111120, end: 20120820
  2. TEMOZOLOMIDE [Suspect]
     Indication: GLIOMA
     Route: 048
     Dates: start: 20111120

REACTIONS (1)
  - Neoplasm progression [Recovering/Resolving]
